FAERS Safety Report 6972995-3 (Version None)
Quarter: 2010Q3

REPORT INFORMATION
  Report Type: 
  Country: None (occurrence: None)
  Receive Date: 20100909
  Receipt Date: 20100827
  Transmission Date: 20110219
  Serious: Yes (Other)
  Sender: FDA-Public Use
  Company Number: US-PFIZER INC-2010094166

PATIENT
  Sex: Female

DRUGS (1)
  1. FESOTERODINE [Suspect]
     Indication: HYPERTONIC BLADDER
     Dosage: NO DOSE GIVEN
     Route: 048

REACTIONS (2)
  - HYPERTENSION [None]
  - SPINAL OPERATION [None]
